FAERS Safety Report 8022801-3 (Version None)
Quarter: 2011Q4

REPORT INFORMATION
  Report Type: 
  Country: None (occurrence: None)
  Receive Date: 20111230
  Receipt Date: 20111221
  Transmission Date: 20120403
  Serious: Yes (Hospitalization)
  Sender: FDA-Public Use
  Company Number: 2011309631

PATIENT
  Age: 58 Year
  Sex: Male

DRUGS (8)
  1. DALTEPARIN SODIUM [Suspect]
     Indication: PULMONARY EMBOLISM
     Dosage: SUBCUTANEOUS
     Route: 058
     Dates: start: 20110805, end: 20110912
  2. DALTEPARIN SODIUM [Suspect]
     Indication: LUNG NEOPLASM MALIGNANT
     Dosage: SUBCUTANEOUS
     Route: 058
     Dates: start: 20110805, end: 20110912
  3. IBUPROFEN [Concomitant]
  4. MORPHINE [Concomitant]
  5. OMEPRAZOLE [Concomitant]
  6. DALTEPARIN SODIUM [Suspect]
     Indication: PULMONARY EMBOLISM
     Dosage: 15000 DAILY
  7. AMITRIPTYLINE HCL [Concomitant]
  8. MORPHINE SULFATE [Concomitant]

REACTIONS (6)
  - HAEMATEMESIS [None]
  - HAEMOGLOBIN DECREASED [None]
  - GASTROINTESTINAL HAEMORRHAGE [None]
  - HYPERCALCAEMIA [None]
  - BLOOD CALCIUM DECREASED [None]
  - PULMONARY EMBOLISM [None]
